FAERS Safety Report 10206721 (Version 1)
Quarter: 2014Q2

REPORT INFORMATION
  Report Type: Spontaneous
  Country: US (occurrence: None)
  Receive Date: 20140528
  Receipt Date: 20140528
  Transmission Date: 20141212
  Serious: Yes (Hospitalization)
  Sender: FDA-Public Use
  Company Number: None

PATIENT
  Sex: Female

DRUGS (1)
  1. METOPROLOL ER [Suspect]
     Indication: BLOOD PRESSURE
     Route: 048
     Dates: start: 20140421, end: 20140504

REACTIONS (6)
  - Chest pain [None]
  - Nausea [None]
  - Dizziness [None]
  - Peripheral coldness [None]
  - Product substitution issue [None]
  - Product quality issue [None]
